FAERS Safety Report 16354832 (Version 1)
Quarter: 2019Q2

REPORT INFORMATION
  Report Type: Spontaneous
  Country: CN (occurrence: CN)
  Receive Date: 20190524
  Receipt Date: 20190524
  Transmission Date: 20190711
  Serious: Yes (Life-Threatening, Other)
  Sender: FDA-Public Use
  Company Number: CN-GLAXOSMITHKLINE-CN2019APC083459

PATIENT

DRUGS (3)
  1. VENTOLIN [Suspect]
     Active Substance: ALBUTEROL SULFATE
     Indication: BRONCHITIS
     Dosage: 5 MG, BID
     Route: 055
     Dates: start: 20190426, end: 20190427
  2. PULMICORT RESPULES [Concomitant]
     Active Substance: BUDESONIDE
     Indication: BRONCHITIS
     Dosage: 1 ML, QD
     Route: 055
     Dates: start: 20190426, end: 20190426
  3. SODIUM CHLORIDE INJECTION [Concomitant]
     Active Substance: SODIUM CHLORIDE
     Indication: BRONCHITIS
     Dosage: 2 ML, QD
     Route: 055
     Dates: start: 20190426, end: 20190426

REACTIONS (8)
  - Hypervigilance [Recovering/Resolving]
  - Palpitations [Recovering/Resolving]
  - Photosensitivity reaction [Recovering/Resolving]
  - Cold sweat [Recovering/Resolving]
  - Areflexia [Recovering/Resolving]
  - Mydriasis [Recovering/Resolving]
  - Dyspnoea [Recovering/Resolving]
  - Hypotension [Recovering/Resolving]

NARRATIVE: CASE EVENT DATE: 20190426
